FAERS Safety Report 15541322 (Version 1)
Quarter: 2018Q4

REPORT INFORMATION
  Report Type: Spontaneous
  Country: US (occurrence: US)
  Receive Date: 20181017
  Receipt Date: 20181017
  Transmission Date: 20190205
  Serious: No
  Sender: FDA-Public Use
  Company Number: None

PATIENT
  Age: 31 Year
  Weight: 95.4 kg

DRUGS (4)
  1. METHOTREXATE. [Suspect]
     Active Substance: METHOTREXATE
     Dates: start: 20180919
  2. DEXAMETHASONE. [Suspect]
     Active Substance: DEXAMETHASONE
     Dates: start: 20181014
  3. DAUNORUBICIN [Suspect]
     Active Substance: DAUNORUBICIN
     Dates: start: 20180919
  4. VINCRISTINE SULFATE. [Suspect]
     Active Substance: VINCRISTINE SULFATE
     Dates: start: 20181001

REACTIONS (9)
  - Lower respiratory tract congestion [None]
  - Blood creatinine increased [None]
  - Sputum discoloured [None]
  - Lung infection [None]
  - Pyrexia [None]
  - Productive cough [None]
  - Dyspnoea exertional [None]
  - Pneumonia [None]
  - Pneumonitis [None]

NARRATIVE: CASE EVENT DATE: 20181010
